FAERS Safety Report 9291613 (Version 1)
Quarter: 2013Q2

REPORT INFORMATION
  Report Type: Spontaneous
  Country: DE (occurrence: DE)
  Receive Date: 20130515
  Receipt Date: 20130515
  Transmission Date: 20140414
  Serious: Yes (Life-Threatening)
  Sender: FDA-Public Use
  Company Number: DE-GLAXOSMITHKLINE-B0891774A

PATIENT
  Age: 47 Year
  Sex: Female

DRUGS (3)
  1. SUMATRIPTAN [Suspect]
     Indication: HEADACHE
     Dosage: 100MG PER DAY
     Route: 048
     Dates: start: 20130401, end: 20130401
  2. IBUFLAM [Concomitant]
  3. ASS [Concomitant]

REACTIONS (4)
  - Cardiopulmonary failure [Recovering/Resolving]
  - Ventricular fibrillation [Recovering/Resolving]
  - Loss of consciousness [Recovering/Resolving]
  - Cyanosis [Recovering/Resolving]
